FAERS Safety Report 4342651-9 (Version None)
Quarter: 2004Q2

REPORT INFORMATION
  Report Type: 
  Country: None (occurrence: None)
  Receive Date: 20040420
  Receipt Date: 20040420
  Transmission Date: 20050107
  Serious: Yes (Hospitalization)
  Sender: FDA-Public Use
  Company Number: None

PATIENT
  Age: 31 Year
  Sex: Male
  Weight: 117 kg

DRUGS (2)
  1. ADVAIR 250/50 MCG  GLAXOSMITHKLINE [Suspect]
     Indication: ASTHMA
     Dosage: 1 PUFF BID ORAL
     Route: 048
     Dates: start: 20030101, end: 20040101
  2. PREDNISONE TAB [Suspect]
     Indication: ARTHRITIS
     Dosage: 10 MG UD ORAL
     Route: 048
     Dates: start: 20040224, end: 20040301

REACTIONS (4)
  - ADRENAL CORTICAL INSUFFICIENCY [None]
  - BLOOD PRESSURE DECREASED [None]
  - EMOTIONAL DISTRESS [None]
  - MEDICATION ERROR [None]
